FAERS Safety Report 8969492 (Version 1)
Quarter: 2012Q4

REPORT INFORMATION
  Report Type: 
  Country: US (occurrence: US)
  Receive Date: 20121218
  Receipt Date: 20121218
  Transmission Date: 20130627
  Serious: Yes (Other)
  Sender: FDA-Public Use
  Company Number: US-BRISTOL-MYERS SQUIBB COMPANY-16257925

PATIENT
  Age: 62 Year
  Sex: Male

DRUGS (4)
  1. ABILIFY [Suspect]
     Dosage: Initial dose:20mg
  2. PREDNISONE [Suspect]
  3. KLONOPIN [Concomitant]
  4. ZOLOFT [Concomitant]

REACTIONS (2)
  - Chest discomfort [Unknown]
  - Pruritus [Unknown]
